FAERS Safety Report 12653127 (Version 1)
Quarter: 2016Q3

REPORT INFORMATION
  Report Type: Spontaneous
  Country: US (occurrence: US)
  Receive Date: 20160815
  Receipt Date: 20160815
  Transmission Date: 20161109
  Serious: No
  Sender: FDA-Public Use
  Company Number: US-CELGENEUS-USA-2016083050

PATIENT
  Sex: Female

DRUGS (1)
  1. REVLIMID [Suspect]
     Active Substance: LENALIDOMIDE
     Indication: NEOPLASM MALIGNANT
     Dosage: 10 MILLIGRAM
     Route: 048
     Dates: start: 201607

REACTIONS (4)
  - Feeling drunk [Unknown]
  - Bone pain [Unknown]
  - Dyspepsia [Unknown]
  - Tremor [Unknown]

NARRATIVE: CASE EVENT DATE: 2016
